FAERS Safety Report 13745168 (Version 1)
Quarter: 2017Q3

REPORT INFORMATION
  Report Type: Spontaneous
  Country: IT (occurrence: IT)
  Receive Date: 20170712
  Receipt Date: 20170712
  Transmission Date: 20171127
  Serious: Yes (Life-Threatening, Hospitalization)
  Sender: FDA-Public Use
  Company Number: IT-ACCORD-053420

PATIENT
  Age: 65 Year
  Weight: 73 kg

DRUGS (9)
  1. OXALIPLATIN ACCORD [Suspect]
     Active Substance: OXALIPLATIN
     Indication: ADENOCARCINOMA PANCREAS
     Route: 040
     Dates: start: 20170529, end: 20170529
  2. IRINOTECAN HYDROCHLORIDE TRIHYDRATE AUROBINDO [Suspect]
     Active Substance: IRINOTECAN HYDROCHLORIDE
     Indication: ADENOCARCINOMA PANCREAS
     Route: 041
     Dates: start: 20170529, end: 20170529
  3. ATROPINE. [Concomitant]
     Active Substance: ATROPINE
     Indication: ANTIDIARRHOEAL SUPPORTIVE CARE
     Route: 058
     Dates: start: 20170529, end: 20170529
  4. ONDANSETRON [Concomitant]
     Active Substance: ONDANSETRON
     Indication: ANTIEMETIC SUPPORTIVE CARE
     Route: 041
     Dates: start: 20170529, end: 20170529
  5. CHLORPHENAMINE [Concomitant]
     Active Substance: CHLORPHENIRAMINE MALEATE
     Indication: SUPPLEMENTATION THERAPY
     Dates: start: 20170529, end: 20170529
  6. FLUOROURACIL ACCORD [Suspect]
     Active Substance: FLUOROURACIL
     Indication: ADENOCARCINOMA PANCREAS
     Route: 040
     Dates: start: 20170529, end: 20170529
  7. CALCIUM LEVOFOLINATE TEVA [Suspect]
     Active Substance: LEVOLEUCOVORIN CALCIUM
     Indication: ADENOCARCINOMA PANCREAS
     Route: 041
     Dates: start: 20170529, end: 20170529
  8. SOLDESAM [Concomitant]
     Active Substance: DEXAMETHASONE
     Indication: SUPPLEMENTATION THERAPY
     Route: 041
     Dates: start: 20170529, end: 20170529
  9. RANITIDINE. [Concomitant]
     Active Substance: RANITIDINE
     Indication: SUPPLEMENTATION THERAPY
     Dates: start: 20170529, end: 20170529

REACTIONS (5)
  - Dehydration [Recovered/Resolved]
  - Neutropenia [Recovered/Resolved]
  - Off label use [Unknown]
  - Thrombocytopenia [Recovered/Resolved]
  - Diarrhoea [Recovered/Resolved]

NARRATIVE: CASE EVENT DATE: 20170604
